FAERS Safety Report 22614792 (Version 1)
Quarter: 2023Q2

REPORT INFORMATION
  Report Type: Spontaneous
  Country: US (occurrence: US)
  Receive Date: 20230619
  Receipt Date: 20230619
  Transmission Date: 20230721
  Serious: Yes (Hospitalization, Other)
  Sender: FDA-Public Use
  Company Number: US-JUBILANT CADISTA PHARMACEUTICALS-2023US000245

PATIENT
  Age: 78 Year
  Sex: Male

DRUGS (6)
  1. OLANZAPINE [Suspect]
     Active Substance: OLANZAPINE
     Indication: Schizophrenia
     Dosage: 20 MG ONCE PER DAY
     Route: 065
     Dates: start: 2002, end: 2022
  2. OLANZAPINE [Suspect]
     Active Substance: OLANZAPINE
     Dosage: 15 MG, ONCE PER DAY
     Dates: start: 2022, end: 2022
  3. OLANZAPINE [Suspect]
     Active Substance: OLANZAPINE
     Dosage: 2.5 MG, 3 TIMES PER DAY; ORAL DISSOLVING TABLETS (VIA A
     Route: 048
     Dates: start: 2022, end: 2022
  4. MEROPENEM [Suspect]
     Active Substance: MEROPENEM
     Indication: Prostatic abscess
     Dosage: UNK  UNK
     Dates: start: 2022, end: 2022
  5. MEROPENEM [Suspect]
     Active Substance: MEROPENEM
     Indication: Colitis
  6. VALPROIC ACID [Concomitant]
     Active Substance: VALPROIC ACID
     Indication: Schizophrenia
     Dosage: UNK  UNK
     Dates: start: 2015

REACTIONS (3)
  - Agranulocytosis [Recovered/Resolved]
  - Rash morbilliform [Recovered/Resolved]
  - Exfoliative rash [Recovered/Resolved]

NARRATIVE: CASE EVENT DATE: 20220101
